FAERS Safety Report 19850371 (Version 1)
Quarter: 2021Q3

REPORT INFORMATION
  Report Type: Other
  Country: US (occurrence: US)
  Receive Date: 20210917
  Receipt Date: 20210917
  Transmission Date: 20211014
  Serious: Yes (Other)
  Sender: FDA-Public Use
  Company Number: US-STANDARD HOMEOPATHIC-2118521

PATIENT
  Age: 3 Year
  Sex: Male

DRUGS (1)
  1. 4 KIDS COMPLETE COLD AND MUCUS [Suspect]
     Active Substance: HOMEOPATHICS
     Indication: PULMONARY CONGESTION
     Route: 048
     Dates: start: 20210901, end: 20210901

REACTIONS (4)
  - Seizure [None]
  - Vomiting [None]
  - Tremor [None]
  - Nausea [None]
